FAERS Safety Report 7166126-7 (Version None)
Quarter: 2010Q4

REPORT INFORMATION
  Report Type: 
  Country: None (occurrence: None)
  Receive Date: 20101216
  Receipt Date: 20101203
  Transmission Date: 20110411
  Serious: Yes (Hospitalization)
  Sender: FDA-Public Use
  Company Number: US-JNJFOC-20101204677

PATIENT
  Sex: Female

DRUGS (11)
  1. TYLENOL (CAPLET) [Suspect]
     Indication: PAIN
  2. TYLENOL (CAPLET) [Suspect]
  3. PEGASYS [Concomitant]
     Indication: HEPATITIS C
  4. COPEGUS [Concomitant]
     Indication: HEPATITIS C
  5. LISINOPRIL [Concomitant]
     Route: 048
  6. METOPROLOL [Concomitant]
     Route: 048
  7. ALLOPURINOL [Concomitant]
     Route: 048
  8. HUMULIN INSULIN [Concomitant]
  9. KENALOG [Concomitant]
  10. CLOTRIMAZOLE [Concomitant]
  11. MULTI-VITAMINS [Concomitant]
     Route: 048

REACTIONS (2)
  - HEPATIC FAILURE [None]
  - OVERDOSE [None]
